FAERS Safety Report 4312656-2 (Version None)
Quarter: 2004Q1

REPORT INFORMATION
  Report Type: 
  Country: None (occurrence: None)
  Receive Date: 20040302
  Receipt Date: 20031110
  Transmission Date: 20041129
  Serious: No
  Sender: FDA-Public Use
  Company Number: 701272

PATIENT
  Age: 55 Year
  Sex: Male

DRUGS (5)
  1. AMEVIVE [Suspect]
     Indication: PSORIASIS
     Dosage: 15 MG QW IM
     Route: 030
     Dates: start: 20030624, end: 20030908
  2. SORIATANE [Concomitant]
  3. DOVONEX [Concomitant]
  4. TEMOVATE [Concomitant]
  5. METHOTREXATE [Concomitant]

REACTIONS (1)
  - PSORIASIS [None]
